FAERS Safety Report 4386569-4 (Version None)
Quarter: 2004Q2

REPORT INFORMATION
  Report Type: 
  Country: None (occurrence: None)
  Receive Date: 20040623
  Receipt Date: 20040609
  Transmission Date: 20050107
  Serious: Yes (Hospitalization)
  Sender: FDA-Public Use
  Company Number: EWC040539152

PATIENT
  Age: 67 Year
  Sex: Male

DRUGS (2)
  1. TADALAFIL [Suspect]
     Indication: ERECTILE DYSFUNCTION
     Dosage: 10 MG AS NEEDED
     Dates: start: 20040401, end: 20040401
  2. UROXATRAL [Concomitant]

REACTIONS (3)
  - AGITATION [None]
  - ASTHENIA [None]
  - TREMOR [None]
